FAERS Safety Report 7606024-5 (Version None)
Quarter: 2011Q3

REPORT INFORMATION
  Report Type: 
  Country: None (occurrence: None)
  Receive Date: 20110713
  Receipt Date: 20110701
  Transmission Date: 20111222
  Serious: Yes (Hospitalization, Other)
  Sender: FDA-Public Use
  Company Number: PHHY2010DE37627

PATIENT
  Sex: Male
  Weight: 104 kg

DRUGS (1)
  1. AFINITOR [Suspect]
     Indication: RENAL CELL CARCINOMA
     Dosage: 10 MG, DAILY
     Route: 048
     Dates: start: 20100209, end: 20110530

REACTIONS (5)
  - NAUSEA [None]
  - PNEUMONITIS [None]
  - INJURY [None]
  - ANGINA PECTORIS [None]
  - ROTATOR CUFF SYNDROME [None]
